FAERS Safety Report 9225802 (Version 1)
Quarter: 2013Q2

REPORT INFORMATION
  Report Type: Spontaneous
  Country: BR (occurrence: BR)
  Receive Date: 20130411
  Receipt Date: 20130411
  Transmission Date: 20140414
  Serious: Yes (Other)
  Sender: FDA-Public Use
  Company Number: BR-PFIZER INC-2013112734

PATIENT
  Sex: Female

DRUGS (4)
  1. LYRICA [Suspect]
     Indication: PAIN IN EXTREMITY
     Dosage: 75 MG, 1X/DAY
     Route: 048
     Dates: start: 2012
  2. AAS [Concomitant]
     Indication: PROPHYLAXIS
     Dosage: UNK
  3. LEXOTAN [Concomitant]
     Indication: RELAXATION THERAPY
     Dosage: UNK
  4. METFORMIN [Concomitant]
     Indication: DIABETES MELLITUS
     Dosage: UNK

REACTIONS (3)
  - Paralysis [Unknown]
  - Coordination abnormal [Unknown]
  - Dizziness [Unknown]
